FAERS Safety Report 7176641-8 (Version None)
Quarter: 2010Q4

REPORT INFORMATION
  Report Type: 
  Country: None (occurrence: None)
  Receive Date: 20101220
  Receipt Date: 20101217
  Transmission Date: 20110411
  Serious: No
  Sender: FDA-Public Use
  Company Number: PHHY2010BR23235

PATIENT
  Sex: Female

DRUGS (2)
  1. DIOVAN TRIPLE [Suspect]
     Dosage: 160/12.5/5 MG
  2. DIOVAN TRIPLE [Suspect]
     Dosage: 160/25/5 MG

REACTIONS (3)
  - BLOOD PRESSURE INADEQUATELY CONTROLLED [None]
  - BLOOD PRESSURE INCREASED [None]
  - DRUG DOSE OMISSION [None]
